FAERS Safety Report 5810021-X (Version None)
Quarter: 2008Q3

REPORT INFORMATION
  Report Type: 
  Country: None (occurrence: None)
  Receive Date: 20080715
  Receipt Date: 20080710
  Transmission Date: 20090109
  Serious: Yes (Congenital Anomaly)
  Sender: FDA-Public Use
  Company Number: A0679445A

PATIENT
  Sex: Female

DRUGS (10)
  1. PAXIL [Suspect]
     Indication: HEADACHE
     Dosage: 10MG TWICE PER DAY
     Dates: start: 20020901, end: 20030301
  2. LANTUS [Concomitant]
     Dates: start: 20010101
  3. INSULIN INSULATARD NPH NORDISK [Concomitant]
     Dates: start: 20010101
  4. VITAMIN TAB [Concomitant]
  5. ELAVIL [Concomitant]
     Dates: start: 20030301, end: 20030701
  6. EFFEXOR [Concomitant]
  7. NOVOLOG [Concomitant]
  8. AUGMENTIN '125' [Concomitant]
     Dates: start: 20030301
  9. ZITHROMAX [Concomitant]
     Dates: start: 20030201
  10. PHENERGAN EXPECTORANT W/ CODEINE [Concomitant]
     Dates: start: 20030201

REACTIONS (5)
  - DRUG EXPOSURE DURING PREGNANCY [None]
  - RHABDOMYOMA [None]
  - SUPRAVENTRICULAR TACHYCARDIA [None]
  - TUBEROUS SCLEROSIS [None]
  - WOLFF-PARKINSON-WHITE SYNDROME [None]
